FAERS Safety Report 5525430-6 (Version None)
Quarter: 2007Q4

REPORT INFORMATION
  Report Type: 
  Country: None (occurrence: None)
  Receive Date: 20071120
  Receipt Date: 20071112
  Transmission Date: 20080405
  Serious: Yes (Death)
  Sender: FDA-Public Use
  Company Number: 20074253

PATIENT
  Age: 62 Year
  Sex: Male

DRUGS (1)
  1. LIORESAL [Suspect]
     Indication: MUSCLE SPASTICITY
     Dosage: MCG, DAILY, INTRATHECAL
     Route: 037

REACTIONS (1)
  - NEOPLASM MALIGNANT [None]
